FAERS Safety Report 4444702-X (Version None)
Quarter: 2004Q3

REPORT INFORMATION
  Report Type: 
  Country: None (occurrence: None)
  Receive Date: 20040902
  Receipt Date: 20040820
  Transmission Date: 20050211
  Serious: Yes (Life-Threatening)
  Sender: FDA-Public Use
  Company Number: MC200400307

PATIENT
  Age: 58 Year
  Sex: Female

DRUGS (3)
  1. ANGIOMAX [Suspect]
     Indication: CORONARY ANGIOPLASTY
     Dosage: 0.75 MG/KG, BOLUS, IV BOLUS; 1.75 MG/KG/HR, INSUFFLATION
     Route: 040
     Dates: start: 20040820, end: 20040820
  2. ANGIOMAX [Suspect]
     Indication: CORONARY ANGIOPLASTY
     Dosage: 0.75 MG/KG, BOLUS, IV BOLUS; 1.75 MG/KG/HR, INSUFFLATION
     Route: 040
     Dates: start: 20040820, end: 20040820
  3. CONTRAST MEDIA (CONTRAST MEDIA) [Suspect]

REACTIONS (5)
  - ANAPHYLACTIC SHOCK [None]
  - CARDIAC PROCEDURE COMPLICATION [None]
  - CARDIO-RESPIRATORY ARREST [None]
  - CHOKING [None]
  - CONTRAST MEDIA REACTION [None]
